FAERS Safety Report 4436820-7 (Version None)
Quarter: 2004Q3

REPORT INFORMATION
  Report Type: 
  Country: None (occurrence: None)
  Receive Date: 20040830
  Receipt Date: 20040818
  Transmission Date: 20050211
  Serious: Yes (Death)
  Sender: FDA-Public Use
  Company Number: NSADSS2002026621

PATIENT
  Sex: Male
  Weight: 102.06 kg

DRUGS (31)
  1. DURAGESIC [Suspect]
     Route: 062
     Dates: start: 19980201
  2. DURAGESIC [Suspect]
     Route: 062
     Dates: start: 19980201
  3. TRAMADOL HYDROCHLORIDE [Suspect]
     Indication: DRUG USE FOR UNKNOWN INDICATION
     Route: 049
  4. ZYRTEC [Concomitant]
     Indication: DRUG USE FOR UNKNOWN INDICATION
  5. NEURONTIN [Concomitant]
  6. PRILOSEC [Concomitant]
  7. ZOLOFT [Concomitant]
  8. LODINE [Concomitant]
  9. CELEBREX [Concomitant]
  10. MONOPRIL [Concomitant]
  11. PRANDIN [Concomitant]
  12. HUMULIN 70/30 [Concomitant]
  13. HUMULIN 70/30 [Concomitant]
  14. LIPITOR [Concomitant]
  15. AVANDIA [Concomitant]
  16. REGLAN [Concomitant]
  17. DEMADEX [Concomitant]
  18. XANAX [Concomitant]
  19. MANAREX [Concomitant]
  20. NEXIUM [Concomitant]
  21. MOTILIUM [Concomitant]
  22. REZULIN [Concomitant]
  23. DESYREL [Concomitant]
  24. LEVOXYL [Concomitant]
  25. HYOSCYAMINE [Concomitant]
  26. BELLADONNA/PHENOBARBITAL [Concomitant]
  27. BELLADONNA/PHENOBARBITAL [Concomitant]
     Dosage: 1-2 TABS Q 8HRS
  28. DIPHENOXYLATE HCL + ATROPINE SULFATE [Concomitant]
  29. DIPHENOXYLATE HCL + ATROPINE SULFATE [Concomitant]
     Dosage: PRN
  30. ALLEGRA [Concomitant]
  31. ZITHROMAX [Concomitant]

REACTIONS (15)
  - ABDOMINAL PAIN [None]
  - ACCIDENTAL OVERDOSE [None]
  - ARTERIOSCLEROSIS [None]
  - CARPAL TUNNEL SYNDROME [None]
  - CIRCULATORY COLLAPSE [None]
  - DIABETIC GASTROPARESIS [None]
  - DIABETIC ULCER [None]
  - DIARRHOEA [None]
  - ELECTROMECHANICAL DISSOCIATION [None]
  - FLATULENCE [None]
  - HYPOACUSIS [None]
  - PERICARDITIS [None]
  - PLEURAL EFFUSION [None]
  - RESPIRATORY DEPRESSION [None]
  - VISION BLURRED [None]
